FAERS Safety Report 4295962-X (Version None)
Quarter: 2004Q1

REPORT INFORMATION
  Report Type: 
  Country: None (occurrence: None)
  Receive Date: 20040212
  Receipt Date: 20040210
  Transmission Date: 20041129
  Serious: Yes (Death)
  Sender: FDA-Public Use
  Company Number: 401025410

PATIENT
  Age: 76 Year
  Sex: Male

DRUGS (2)
  1. AK-FLUOR [Suspect]
     Indication: ANGIOGRAM
  2. NEOSYNEPHRINE [Suspect]
     Indication: ANGIOGRAM

REACTIONS (1)
  - CARDIO-RESPIRATORY ARREST [None]
